FAERS Safety Report 7347125-9 (Version None)
Quarter: 2011Q1

REPORT INFORMATION
  Report Type: 
  Country: None (occurrence: None)
  Receive Date: 20110311
  Receipt Date: 20110228
  Transmission Date: 20110831
  Serious: Yes (Hospitalization, Other)
  Sender: FDA-Public Use
  Company Number: PHHY2011IT16637

PATIENT
  Sex: Male

DRUGS (1)
  1. DIAZEPAM [Suspect]
     Dosage: UNK
     Dates: start: 20100520, end: 20100520

REACTIONS (3)
  - SOMNOLENCE [None]
  - POLYNEUROPATHY [None]
  - INCORRECT DOSE ADMINISTERED [None]
